FAERS Safety Report 5455436-7 (Version None)
Quarter: 2007Q3

REPORT INFORMATION
  Report Type: 
  Country: None (occurrence: None)
  Receive Date: 20070913
  Receipt Date: 20070913
  Transmission Date: 20080115
  Serious: Yes (Other)
  Sender: FDA-Public Use
  Company Number: None

PATIENT
  Sex: Male
  Weight: 83.9154 kg

DRUGS (1)
  1. AVODART [Suspect]
     Indication: PROSTATE EXAMINATION ABNORMAL
     Dosage: ONCE DAILY PO
     Route: 048
     Dates: start: 20070626, end: 20070905

REACTIONS (2)
  - ARTHRALGIA [None]
  - GAIT DISTURBANCE [None]
